FAERS Safety Report 7650609-7 (Version None)
Quarter: 2011Q3

REPORT INFORMATION
  Report Type: 
  Country: None (occurrence: None)
  Receive Date: 20110802
  Receipt Date: 20110718
  Transmission Date: 20111222
  Serious: No
  Sender: FDA-Public Use
  Company Number: US-BAYER-2011-063854

PATIENT
  Sex: Male
  Weight: 104 kg

DRUGS (3)
  1. ALEVE (CAPLET) [Suspect]
     Indication: ARTHRITIS
     Dosage: 2 DF, QD
     Route: 048
     Dates: start: 20110711, end: 20110717
  2. CHOLESTEROL- AND TRIGLYCERIDE REDUCERS [Concomitant]
  3. BLOOD PRESSURE MEDICATION (NOS) [Concomitant]

REACTIONS (2)
  - GINGIVAL BLEEDING [None]
  - ABDOMINAL DISCOMFORT [None]
